FAERS Safety Report 8044165-1 (Version None)
Quarter: 2012Q1

REPORT INFORMATION
  Report Type: 
  Country: None (occurrence: None)
  Receive Date: 20120113
  Receipt Date: 20120109
  Transmission Date: 20120608
  Serious: Yes (Hospitalization)
  Sender: FDA-Public Use
  Company Number: ES-BRISTOL-MYERS SQUIBB COMPANY-16243156

PATIENT
  Age: 52 Year
  Sex: Male

DRUGS (2)
  1. CETUXIMAB [Suspect]
     Indication: SQUAMOUS CELL CARCINOMA
     Dosage: INTERRUPTED ON 7OCT10,RESTARTED ON 20OCT10 DURATION:22D RECENT INF(3RD):30SEP10
     Route: 042
     Dates: start: 20100915
  2. CETUXIMAB [Suspect]
     Indication: LARYNGEAL CANCER
     Dosage: INTERRUPTED ON 7OCT10,RESTARTED ON 20OCT10 DURATION:22D RECENT INF(3RD):30SEP10
     Route: 042
     Dates: start: 20100915

REACTIONS (1)
  - RADIATION MUCOSITIS [None]
